FAERS Safety Report 9441354 (Version 1)
Quarter: 2013Q3

REPORT INFORMATION
  Report Type: Spontaneous
  Country: US (occurrence: US)
  Receive Date: 20130805
  Receipt Date: 20130805
  Transmission Date: 20140515
  Serious: Yes (Other)
  Sender: FDA-Public Use
  Company Number: US-ROCHE-1257135

PATIENT
  Sex: 0

DRUGS (2)
  1. AVASTIN [Suspect]
     Indication: GLIOBLASTOMA
     Route: 042
  2. TEMODAR [Suspect]
     Indication: GLIOBLASTOMA
     Route: 065

REACTIONS (1)
  - Convulsion [Unknown]
